FAERS Safety Report 5385741-4 (Version None)
Quarter: 2007Q3

REPORT INFORMATION
  Report Type: 
  Country: None (occurrence: None)
  Receive Date: 20070712
  Receipt Date: 20070630
  Transmission Date: 20080115
  Serious: Yes (Other)
  Sender: FDA-Public Use
  Company Number: US-PFIZER INC-2007047477

PATIENT
  Sex: Female
  Weight: 49 kg

DRUGS (8)
  1. CHANTIX [Suspect]
     Indication: SMOKING CESSATION THERAPY
  2. CHANTIX [Suspect]
     Indication: TOBACCO ABUSE
  3. ADVAIR DISKUS 100/50 [Concomitant]
  4. SINGULAIR [Concomitant]
  5. SPIRIVA [Concomitant]
  6. MUCINEX [Concomitant]
  7. FIBRE, DIETARY [Concomitant]
  8. PREDNISONE [Concomitant]

REACTIONS (6)
  - DYSGEUSIA [None]
  - INCREASED APPETITE [None]
  - INSOMNIA [None]
  - MUSCLE SPASMS [None]
  - MYALGIA [None]
  - WEIGHT DECREASED [None]
